FAERS Safety Report 5953099-5 (Version None)
Quarter: 2008Q4

REPORT INFORMATION
  Report Type: 
  Country: None (occurrence: None)
  Receive Date: 20081114
  Receipt Date: 20081106
  Transmission Date: 20090506
  Serious: Yes (Hospitalization)
  Sender: FDA-Public Use
  Company Number: AU-B.I. PHARMACEUTICALS,INC./RIDGEFIELD-2008-BP-16833AU

PATIENT
  Sex: Female

DRUGS (3)
  1. MOBIC [Suspect]
     Dosage: 7.5MG
     Route: 048
  2. MICARDIS HCT [Suspect]
     Dosage: 80/12.5 MG/MG
     Route: 048
     Dates: end: 20080308
  3. RABEPRAZOLE SODIUM [Concomitant]
     Dosage: 20MG
     Route: 048

REACTIONS (3)
  - BRADYCARDIA [None]
  - SYNCOPE [None]
  - TACHYCARDIA [None]
